FAERS Safety Report 14638776 (Version 1)
Quarter: 2018Q1

REPORT INFORMATION
  Report Type: Spontaneous
  Country: FR (occurrence: FR)
  Receive Date: 20180315
  Receipt Date: 20180315
  Transmission Date: 20180509
  Serious: Yes (Other)
  Sender: FDA-Public Use
  Company Number: FR-MERCK KGAA-2043745

PATIENT
  Sex: Female

DRUGS (2)
  1. NOVOTHYROX [Suspect]
     Active Substance: LEVOTHYROXINE SODIUM
     Indication: BASEDOW^S DISEASE
  2. NEOMERCAZOLE [Concomitant]
     Active Substance: CARBIMAZOLE

REACTIONS (20)
  - Lacrimation increased [None]
  - Depression [None]
  - Somnolence [None]
  - Social avoidant behaviour [None]
  - Asthenia [None]
  - Fatigue [None]
  - Dizziness [None]
  - Apathy [None]
  - Visual impairment [None]
  - Balance disorder [None]
  - Eye irritation [None]
  - General physical health deterioration [None]
  - Presyncope [None]
  - Mood swings [None]
  - Hypersomnia [None]
  - Loss of personal independence in daily activities [None]
  - Muscle spasms [None]
  - Headache [None]
  - Irritability [None]
  - Gait disturbance [None]
